FAERS Safety Report 4810791-3 (Version None)
Quarter: 2005Q4

REPORT INFORMATION
  Report Type: 
  Country: None (occurrence: None)
  Receive Date: 20051024
  Receipt Date: 20051014
  Transmission Date: 20060501
  Serious: Yes (Disabling)
  Sender: FDA-Public Use
  Company Number: 2005143114

PATIENT
  Age: 47 Year
  Sex: Female
  Weight: 70.3075 kg

DRUGS (4)
  1. ZOLOFT [Suspect]
     Indication: DEPRESSION
     Dosage: 50 MG (50 MG, 1 IN 1 D)
     Dates: start: 19910101
  2. PREVACID [Concomitant]
  3. ESTROGENS SOL/INJ [Concomitant]
  4. ULTRAM [Concomitant]

REACTIONS (9)
  - ACCIDENT AT WORK [None]
  - BACK INJURY [None]
  - BACK PAIN [None]
  - CRYING [None]
  - DRUG DOSE OMISSION [None]
  - EMOTIONAL DISTRESS [None]
  - INTERVERTEBRAL DISC PROTRUSION [None]
  - MENTAL DISORDER [None]
  - STARING [None]
